FAERS Safety Report 7934214-0 (Version None)
Quarter: 2011Q4

REPORT INFORMATION
  Report Type: 
  Country: None (occurrence: None)
  Receive Date: 20111122
  Receipt Date: 20110804
  Transmission Date: 20120403
  Serious: No
  Sender: FDA-Public Use
  Company Number: US-BAYER-2011-077368

PATIENT
  Sex: Female
  Weight: 58.957 kg

DRUGS (8)
  1. MULTI-VITAMINS [Concomitant]
  2. INSULIN [Concomitant]
  3. OXYCODONE HCL [Concomitant]
  4. DURAGESIC-100 [Concomitant]
  5. NEURONTIN [Concomitant]
  6. OSCAL [Concomitant]
  7. ALEVE (CAPLET) [Suspect]
     Indication: ARTHRITIS
     Dosage: BOTTLE COUNT 24S
     Route: 048
     Dates: end: 20110804
  8. SOMA [Concomitant]

REACTIONS (1)
  - ARTHRITIS [None]
